APPROVED DRUG PRODUCT: MORPHINE SULFATE
Active Ingredient: MORPHINE SULFATE
Strength: 4MG/ML
Dosage Form/Route: INJECTABLE;INJECTION
Application: N202515 | Product #002 | TE Code: AP
Applicant: HOSPIRA INC
Approved: Nov 14, 2011 | RLD: Yes | RS: No | Type: RX